FAERS Safety Report 25230257 (Version 1)
Quarter: 2025Q2

REPORT INFORMATION
  Report Type: Spontaneous
  Country: US (occurrence: None)
  Receive Date: 20250422
  Receipt Date: 20250422
  Transmission Date: 20250716
  Serious: Yes (Hospitalization)
  Sender: FDA-CTU
  Company Number: None

PATIENT
  Age: 75 Year
  Sex: Female

DRUGS (1)
  1. ICLUSIG [Suspect]
     Active Substance: PONATINIB HYDROCHLORIDE
     Dates: start: 20250327, end: 20250422

REACTIONS (4)
  - Portal vein thrombosis [None]
  - Mesenteric vein thrombosis [None]
  - Cardiac failure acute [None]
  - Drug-induced liver injury [None]

NARRATIVE: CASE EVENT DATE: 20250404
